FAERS Safety Report 15781894 (Version 2)
Quarter: 2019Q1

REPORT INFORMATION
  Report Type: Spontaneous
  Country: PT (occurrence: PT)
  Receive Date: 20190102
  Receipt Date: 20190104
  Transmission Date: 20190417
  Serious: Yes (Life-Threatening, Hospitalization, Other)
  Sender: FDA-Public Use
  Company Number: PT-PFIZER INC-2018534700

PATIENT
  Age: 55 Year
  Sex: Female

DRUGS (4)
  1. PREDNISOLONE. [Suspect]
     Active Substance: PREDNISOLONE
     Indication: WARM TYPE HAEMOLYTIC ANAEMIA
     Dosage: 2 MG/KG, DAILY
     Route: 048
  2. RITUXIMAB. [Suspect]
     Active Substance: RITUXIMAB
     Indication: WARM TYPE HAEMOLYTIC ANAEMIA
     Dosage: 600 MG, WEEKLY
  3. METHYLPREDNISOLONE SODIUM SUCCINATE. [Suspect]
     Active Substance: METHYLPREDNISOLONE SODIUM SUCCINATE
     Indication: WARM TYPE HAEMOLYTIC ANAEMIA
     Dosage: 1 G, UNK (3 PULSES)
     Route: 042
  4. PREDNISOLONE. [Suspect]
     Active Substance: PREDNISOLONE
     Dosage: 1.6 MG/KG, DAILY
     Route: 048

REACTIONS (5)
  - Respiratory failure [Recovered/Resolved]
  - Herpes ophthalmic [Unknown]
  - Tracheobronchitis [Not Recovered/Not Resolved]
  - Oral candidiasis [Unknown]
  - Pneumocystis jirovecii pneumonia [Unknown]
